FAERS Safety Report 8384807-4 (Version None)
Quarter: 2012Q2

REPORT INFORMATION
  Report Type: 
  Country: None (occurrence: None)
  Receive Date: 20120524
  Receipt Date: 20120514
  Transmission Date: 20120825
  Serious: Yes (Other)
  Sender: FDA-Public Use
  Company Number: AU-FRI-1000030359

PATIENT
  Sex: Female
  Weight: 75 kg

DRUGS (4)
  1. LEXAPRO [Suspect]
     Indication: HORMONE LEVEL ABNORMAL
     Dosage: 10 MG
     Route: 048
  2. NASONEX [Concomitant]
     Indication: SINUSITIS
     Dates: start: 20100521
  3. CEFACLOR [Concomitant]
     Indication: SINUSITIS
     Dates: start: 20100531
  4. PANVAX [Concomitant]
     Dates: start: 20100618

REACTIONS (2)
  - MULTIPLE SCLEROSIS [None]
  - OFF LABEL USE [None]
